FAERS Safety Report 4825707-3 (Version None)
Quarter: 2005Q4

REPORT INFORMATION
  Report Type: 
  Country: None (occurrence: None)
  Receive Date: 20051109
  Receipt Date: 20051017
  Transmission Date: 20060501
  Serious: Yes (Other)
  Sender: FDA-Public Use
  Company Number: OMPQ-PR-0510S-1401

PATIENT
  Age: 72 Year
  Sex: Female

DRUGS (1)
  1. OMNIPAQUE 140 [Suspect]
     Dosage: 30 ML, SINGLE  DOSE, EXTRAVASATION
     Dates: start: 20051013, end: 20051013

REACTIONS (2)
  - FASCIECTOMY [None]
  - INJECTION SITE VESICLES [None]
